FAERS Safety Report 16257372 (Version 2)
Quarter: 2019Q4

REPORT INFORMATION
  Report Type: Report from Study
  Country: DE (occurrence: DE)
  Receive Date: 20190430
  Receipt Date: 20191213
  Transmission Date: 20200122
  Serious: Yes (Hospitalization)
  Sender: FDA-Public Use
  Company Number: DE-MYLANLABS-2019M1040667

PATIENT
  Age: 75 Year
  Sex: Female

DRUGS (2)
  1. METHOTREXATE. [Suspect]
     Active Substance: METHOTREXATE
     Indication: PRODUCT USED FOR UNKNOWN INDICATION
     Dosage: RANGE BETWEEN 2.5 TO 25 (UNIT NOT REPORTED)
     Route: 065
     Dates: start: 2010
  2. HUMIRA [Suspect]
     Active Substance: ADALIMUMAB
     Indication: RHEUMATIC DISORDER
     Dosage: 40 MILLIGRAM, BIWEEKLY
     Route: 058
     Dates: start: 201111

REACTIONS (2)
  - Intervertebral disc protrusion [Recovered/Resolved]
  - Spinal stenosis [Recovered/Resolved]

NARRATIVE: CASE EVENT DATE: 20170917
